FAERS Safety Report 17966817 (Version 1)
Quarter: 2020Q2

REPORT INFORMATION
  Report Type: Report from Study
  Country: None (occurrence: GB)
  Receive Date: 20200630
  Receipt Date: 20200630
  Transmission Date: 20200714
  Serious: Yes (Hospitalization)
  Sender: FDA-Public Use
  Company Number: GB-ABBVIE-20K-167-3464725-00

PATIENT
  Sex: Male

DRUGS (1)
  1. DUODOPA [Suspect]
     Active Substance: CARBIDOPA\LEVODOPA
     Indication: PARKINSON^S DISEASE
     Dosage: 100ML CASSETTE DAILY?5MG/1ML?20MG/1ML
     Route: 050

REACTIONS (4)
  - Diplopia [Unknown]
  - Balance disorder [Unknown]
  - Fall [Unknown]
  - Acoustic neuroma [Unknown]
